FAERS Safety Report 10244552 (Version 1)
Quarter: 2014Q2

REPORT INFORMATION
  Report Type: Spontaneous
  Country: GB (occurrence: None)
  Receive Date: 20140616
  Receipt Date: 20140616
  Transmission Date: 20141212
  Serious: Yes (Disabling, Other)
  Sender: FDA-Public Use
  Company Number: AUR-APL-2014-06237

PATIENT
  Age: 64 Year
  Sex: Male
  Weight: 68 kg

DRUGS (2)
  1. CIPROFLOXACIN (CIPROFLOXACIN) UNKNOWN, 500MG [Suspect]
     Indication: PROSTATITIS
     Route: 048
     Dates: start: 20121215
  2. TAMSULOSIN (TAMSULOSIN) [Concomitant]

REACTIONS (12)
  - Tendonitis [None]
  - Epicondylitis [None]
  - Tendon disorder [None]
  - Pain [None]
  - Muscular weakness [None]
  - Discomfort [None]
  - Tendon pain [None]
  - Quality of life decreased [None]
  - Paraesthesia [None]
  - Anosmia [None]
  - Plantar fasciitis [None]
  - Burning sensation [None]
